FAERS Safety Report 26185615 (Version 1)
Quarter: 2025Q4

REPORT INFORMATION
  Report Type: Spontaneous
  Country: JP (occurrence: JP)
  Receive Date: 20251222
  Receipt Date: 20251222
  Transmission Date: 20260117
  Serious: Yes (Other)
  Sender: DAIICHI
  Company Number: JP-DSJP-DS-2025-184527-JPAA

PATIENT
  Age: 82 Year
  Sex: Male

DRUGS (1)
  1. EDOXABAN TOSYLATE [Suspect]
     Active Substance: EDOXABAN TOSYLATE
     Indication: Product used for unknown indication
     Dosage: 60 MG
     Route: 048
     Dates: start: 2025

REACTIONS (1)
  - Renal impairment [Not Recovered/Not Resolved]

NARRATIVE: CASE EVENT DATE: 20250101
